FAERS Safety Report 6467275-9 (Version None)
Quarter: 2009Q4

REPORT INFORMATION
  Report Type: 
  Country: None (occurrence: None)
  Receive Date: 20091127
  Receipt Date: 20091117
  Transmission Date: 20100525
  Serious: Yes (Hospitalization)
  Sender: FDA-Public Use
  Company Number: 2009110039

PATIENT
  Age: 90 Year
  Sex: Female
  Weight: 59 kg

DRUGS (6)
  1. TORSEMIDE [Suspect]
     Indication: HYPERTENSION
     Dosage: 20 MG (10 MG, 2 IN 1 D) ,ORAL
     Route: 048
     Dates: start: 20070501, end: 20090525
  2. BISOPROLOL FUMARATE AND HYDROCHLOROTHIAZIDE [Suspect]
     Indication: HYPERTENSION
     Dosage: 5 MG BISOPROLOL/12.5 MG HYDROCHLOROTHIAZIDE (1 DOSAGE FORMS,1 IN 1 D), ORAL
     Route: 048
     Dates: start: 20070501, end: 20090525
  3. XIPAMIDE (XIPAMIDE) [Suspect]
     Indication: HYPERTENSION
     Dosage: 20 MG (20 MG, 1 IN 1 D), ORAL
     Route: 048
     Dates: end: 20090525
  4. LISINOPRIL [Suspect]
     Indication: HYPERTENSION
     Dosage: 10 MG (10 MG,1 IN 1 D), ORAL
     Route: 048
     Dates: start: 20070501, end: 20090525
  5. GLIMEPIRIDE [Concomitant]
  6. OMEPRAZOLE [Concomitant]

REACTIONS (8)
  - ACUTE PRERENAL FAILURE [None]
  - ASTHENIA [None]
  - DEHYDRATION [None]
  - DRUG INTERACTION [None]
  - DRY SKIN [None]
  - FLUID INTAKE REDUCED [None]
  - HYPERKALAEMIA [None]
  - MUCOSAL DRYNESS [None]
